FAERS Safety Report 14187091 (Version 1)
Quarter: 2017Q4

REPORT INFORMATION
  Report Type: Spontaneous
  Country: US (occurrence: US)
  Receive Date: 20171114
  Receipt Date: 20171114
  Transmission Date: 20180321
  Serious: No
  Sender: FDA-Public Use
  Company Number: US-PFIZER INC-2017486494

PATIENT
  Age: 72 Year
  Sex: Female

DRUGS (1)
  1. CORTISPORIN [Suspect]
     Active Substance: BACITRACIN ZINC\HYDROCORTISONE\NEOMYCIN SULFATE\POLYMYXIN B SULFATE
     Dosage: 4 GTT, 2X/DAY [(3.5-10000-1) 4 DROPS INTO AFFECTED EAR
     Route: 001

REACTIONS (1)
  - Product use issue [Unknown]
